FAERS Safety Report 10238933 (Version 1)
Quarter: 2014Q2

REPORT INFORMATION
  Report Type: Spontaneous
  Country: US (occurrence: None)
  Receive Date: 20140613
  Receipt Date: 20140613
  Transmission Date: 20141212
  Serious: Yes (Other)
  Sender: FDA-Public Use
  Company Number: None

PATIENT
  Age: 70 Year
  Sex: Male
  Weight: 104.33 kg

DRUGS (1)
  1. ANDROGEL [Suspect]
     Indication: LIBIDO DECREASED
     Dosage: APPLY DAILY ONCE DAILY APPLIED TO A SURFACE, USUALLY THE SKIN
     Route: 061

REACTIONS (1)
  - Gynaecomastia [None]
